FAERS Safety Report 18489697 (Version 1)
Quarter: 2020Q4

REPORT INFORMATION
  Report Type: Spontaneous
  Country: US (occurrence: US)
  Receive Date: 20201110
  Receipt Date: 20201110
  Transmission Date: 20210114
  Serious: Yes (Death)
  Sender: FDA-Public Use
  Company Number: None

PATIENT
  Age: 91 Year
  Sex: Male
  Weight: 87.75 kg

DRUGS (12)
  1. LOSARTAN. [Concomitant]
     Active Substance: LOSARTAN
  2. PRESERVISION [Concomitant]
     Active Substance: MINERALS\VITAMINS
  3. ALLOPURINOL. [Concomitant]
     Active Substance: ALLOPURINOL
  4. LIPITOR [Concomitant]
     Active Substance: ATORVASTATIN CALCIUM
  5. XARELTO [Concomitant]
     Active Substance: RIVAROXABAN
  6. LASIX [Concomitant]
     Active Substance: FUROSEMIDE
  7. HYDROXYUREA. [Concomitant]
     Active Substance: HYDROXYUREA
  8. AMLODIPINE [Concomitant]
     Active Substance: AMLODIPINE BESYLATE
  9. LEXAPRO [Concomitant]
     Active Substance: ESCITALOPRAM OXALATE
  10. IMATINIB. [Suspect]
     Active Substance: IMATINIB MESYLATE
     Indication: CHRONIC MYELOID LEUKAEMIA
     Route: 048
     Dates: start: 20200804, end: 20201109
  11. BISOPROLOL [Concomitant]
     Active Substance: BISOPROLOL
  12. PROTONIX [Concomitant]
     Active Substance: PANTOPRAZOLE SODIUM

REACTIONS (1)
  - Death [None]

NARRATIVE: CASE EVENT DATE: 20201109
